FAERS Safety Report 9432292 (Version 2)
Quarter: 2013Q3

REPORT INFORMATION
  Report Type: Spontaneous
  Country: US (occurrence: None)
  Receive Date: 20130729
  Receipt Date: 20130919
  Transmission Date: 20140515
  Serious: Yes (Hospitalization)
  Sender: FDA-Public Use
  Company Number: UTC-035727

PATIENT
  Age: 85 Year
  Sex: Male
  Weight: 102.7 kg

DRUGS (2)
  1. TYVASO [Suspect]
     Indication: PULMONARY ARTERIAL HYPERTENSION
     Dosage: 18 TO 54 BREATHS (4 IN 1 D)
     Route: 055
     Dates: start: 20130531
  2. TRACLEER (BOSENTAN) [Concomitant]

REACTIONS (3)
  - Cardiac failure congestive [None]
  - Throat irritation [None]
  - Condition aggravated [None]
